FAERS Safety Report 5592594-8 (Version None)
Quarter: 2008Q1

REPORT INFORMATION
  Report Type: 
  Country: None (occurrence: None)
  Receive Date: 20080114
  Receipt Date: 20080103
  Transmission Date: 20080703
  Serious: Yes (Other)
  Sender: FDA-Public Use
  Company Number: 230039J08USA

PATIENT
  Age: 53 Year
  Sex: Male
  Weight: 58.9676 kg

DRUGS (3)
  1. REBIF [Suspect]
     Indication: MULTIPLE SCLEROSIS
     Dosage: 44 MCG, 3 IN 1 WEEKS, SUBCUTANEOUS
     Route: 058
     Dates: start: 20071009, end: 20071201
  2. LITHIUM CARBONATE [Concomitant]
  3. ZOLOFT [Concomitant]

REACTIONS (1)
  - GRAND MAL CONVULSION [None]
